FAERS Safety Report 18207502 (Version 3)
Quarter: 2020Q3

REPORT INFORMATION
  Report Type: Spontaneous
  Country: JP (occurrence: JP)
  Receive Date: 20200828
  Receipt Date: 20200918
  Transmission Date: 20201103
  Serious: No
  Sender: FDA-Public Use
  Company Number: JP-FERRINGPH-2020FE05599

PATIENT
  Age: 7 Decade
  Sex: Male
  Weight: 82.5 kg

DRUGS (11)
  1. DESMOPRESSIN KYOWA [Suspect]
     Active Substance: DESMOPRESSIN
     Dosage: 5 UG
     Route: 065
     Dates: start: 20200801
  2. THYRADIN [Concomitant]
     Active Substance: LEVOTHYROXINE
     Dosage: 75 UG
     Route: 065
  3. ROZEREM [Concomitant]
     Active Substance: RAMELTEON
     Dosage: 8 MG
     Route: 065
  4. DESMOPRESSIN KYOWA [Suspect]
     Active Substance: DESMOPRESSIN
     Dosage: 7.5 UG
     Route: 065
     Dates: start: 20200804, end: 20200804
  5. TAKELDA [Concomitant]
     Active Substance: ASPIRIN\LANSOPRAZOLE
     Dosage: 1 DF
     Route: 065
  6. DECADRON [Concomitant]
     Active Substance: DEXAMETHASONE
     Dosage: 0.5 MG
     Route: 065
  7. RISPERIDONE. [Concomitant]
     Active Substance: RISPERIDONE
     Dosage: 0.5 MG
     Route: 065
  8. MINIRINMELT [Suspect]
     Active Substance: DESMOPRESSIN ACETATE
     Dosage: 120 UG
     Route: 048
     Dates: start: 20200807, end: 20200810
  9. DESMOPRESSIN KYOWA [Suspect]
     Active Substance: DESMOPRESSIN
     Indication: DIABETES INSIPIDUS
     Dosage: 12.5 UG
     Route: 065
     Dates: start: 20200805, end: 20200806
  10. MINIRINMELT [Suspect]
     Active Substance: DESMOPRESSIN ACETATE
     Indication: DIABETES INSIPIDUS
     Dosage: 30 UG
     Route: 048
  11. MINIRINMELT [Suspect]
     Active Substance: DESMOPRESSIN ACETATE
     Dosage: 60 UG
     Route: 048
     Dates: start: 20200811

REACTIONS (3)
  - Wrong technique in product usage process [Unknown]
  - Blood sodium decreased [Recovered/Resolved]
  - Therapeutic response decreased [Recovered/Resolved]

NARRATIVE: CASE EVENT DATE: 20200810
